FAERS Safety Report 8114642-3 (Version None)
Quarter: 2012Q1

REPORT INFORMATION
  Report Type: 
  Country: None (occurrence: None)
  Receive Date: 20120206
  Receipt Date: 20120201
  Transmission Date: 20120608
  Serious: Yes (Other)
  Sender: FDA-Public Use
  Company Number: BR-PFIZER INC-2011272598

PATIENT
  Age: 62 Year
  Sex: Female
  Weight: 56 kg

DRUGS (5)
  1. LORAX [Concomitant]
     Indication: INSOMNIA
     Dosage: 1MG, UNKNOWN FREQUENCY
     Dates: start: 20020101
  2. VARENICLINE TARTRATE [Suspect]
     Dosage: 0.5 MG, 2X/DAY
     Route: 048
  3. NEXIUM [Concomitant]
     Indication: GASTRITIS
     Dosage: 20 MG, 1X/DAY
     Dates: start: 20110301
  4. VYTORIN [Concomitant]
     Indication: BLOOD CHOLESTEROL INCREASED
     Dosage: UNK
     Dates: start: 20090101
  5. VARENICLINE TARTRATE [Suspect]
     Indication: TOBACCO USER
     Dosage: UNK
     Route: 048
     Dates: start: 20111102

REACTIONS (8)
  - CONSTIPATION [None]
  - HYPERSENSITIVITY [None]
  - VISUAL IMPAIRMENT [None]
  - MALAISE [None]
  - ABDOMINAL DISTENSION [None]
  - URTICARIA [None]
  - SWELLING FACE [None]
  - INFECTION [None]
